FAERS Safety Report 8591524-4 (Version None)
Quarter: 2012Q3

REPORT INFORMATION
  Report Type: 
  Country: None (occurrence: None)
  Receive Date: 20120801
  Receipt Date: 20120722
  Transmission Date: 20120928
  Serious: Yes (Death, Hospitalization)
  Sender: FDA-Public Use
  Company Number: USW201207-000115

PATIENT
  Age: 70 Year
  Sex: Female

DRUGS (7)
  1. PROZAC [Concomitant]
  2. SIMVASTATIN [Concomitant]
  3. XANAX [Concomitant]
  4. FOSAMAX [Concomitant]
  5. LISINOPRIL [Concomitant]
  6. LEVOTHYROXINE SODIUM [Concomitant]
  7. APOKYN [Suspect]
     Indication: PARKINSON'S DISEASE
     Dosage: 0.3 ML, DAILY AS NEEDED, 4 DAYS, SUBCUTANEOUS
     Route: 058
     Dates: start: 20120718, end: 20120721

REACTIONS (6)
  - UNRESPONSIVE TO STIMULI [None]
  - DYSPNOEA [None]
  - LOSS OF CONSCIOUSNESS [None]
  - DYSARTHRIA [None]
  - MYOCARDIAL INFARCTION [None]
  - MALAISE [None]
